FAERS Safety Report 4576110-5 (Version None)
Quarter: 2005Q1

REPORT INFORMATION
  Report Type: 
  Country: None (occurrence: None)
  Receive Date: 20050209
  Receipt Date: 20041215
  Transmission Date: 20050727
  Serious: Yes (Other)
  Sender: FDA-Public Use
  Company Number: PHEH2004US13360

PATIENT
  Age: 42 Year
  Sex: Female
  Weight: 61 kg

DRUGS (1)
  1. ZELNORM [Suspect]
     Indication: IRRITABLE BOWEL SYNDROME
     Dosage: 6 MG, QD
     Route: 048
     Dates: start: 20040827

REACTIONS (4)
  - DIARRHOEA [None]
  - DIZZINESS [None]
  - NAUSEA [None]
  - VOMITING [None]
